FAERS Safety Report 14183909 (Version 2)
Quarter: 2018Q1

REPORT INFORMATION
  Report Type: Report from Study
  Country: US (occurrence: US)
  Receive Date: 20171113
  Receipt Date: 20180128
  Transmission Date: 20180508
  Serious: No
  Sender: FDA-Public Use
  Company Number: PHEH2017US036010

PATIENT
  Age: 70 Year
  Sex: Female

DRUGS (1)
  1. COSENTYX [Suspect]
     Active Substance: SECUKINUMAB
     Indication: PRODUCT USED FOR UNKNOWN INDICATION
     Dosage: 150 MG, QMO
     Route: 030

REACTIONS (3)
  - Wrong technique in device usage process [Unknown]
  - Incorrect route of drug administration [Unknown]
  - Device malfunction [Unknown]

NARRATIVE: CASE EVENT DATE: 20171103
